FAERS Safety Report 7629100-X (Version None)
Quarter: 2011Q3

REPORT INFORMATION
  Report Type: 
  Country: None (occurrence: None)
  Receive Date: 20110722
  Receipt Date: 20110722
  Transmission Date: 20111222
  Serious: No
  Sender: FDA-Public Use
  Company Number: None

PATIENT
  Age: 58 Year
  Sex: Female
  Weight: 103.87 kg

DRUGS (1)
  1. ADVAIR DISKUS 100/50 [Suspect]
     Indication: ASTHMA
     Dates: start: 20100605, end: 20110721

REACTIONS (7)
  - DYSPHONIA [None]
  - THROAT TIGHTNESS [None]
  - DYSPNOEA [None]
  - OROPHARYNGEAL PAIN [None]
  - UPPER RESPIRATORY TRACT CONGESTION [None]
  - COUGH [None]
  - LARYNGITIS [None]
